FAERS Safety Report 7346009-X (Version None)
Quarter: 2011Q1

REPORT INFORMATION
  Report Type: 
  Country: None (occurrence: None)
  Receive Date: 20110308
  Receipt Date: 20110308
  Transmission Date: 20110831
  Serious: No
  Sender: FDA-Public Use
  Company Number: None

PATIENT
  Sex: Male

DRUGS (1)
  1. TASIGNA [Suspect]
     Dosage: 150 MG PO TAKE 2 CAPSULES (300MG) BY MOUTH TWICE A DAY
     Route: 048
     Dates: start: 20100825

REACTIONS (1)
  - ALOPECIA [None]
